FAERS Safety Report 19039322 (Version 1)
Quarter: 2021Q1

REPORT INFORMATION
  Report Type: Spontaneous
  Country: BR (occurrence: BR)
  Receive Date: 20210322
  Receipt Date: 20210322
  Transmission Date: 20210420
  Serious: Yes (Death, Other)
  Sender: FDA-Public Use
  Company Number: BR-B.I. PHARMACEUTICALS,INC./RIDGEFIELD-2021-BI-091181

PATIENT
  Age: 80 Year
  Sex: Male

DRUGS (1)
  1. PRADAXA [Suspect]
     Active Substance: DABIGATRAN ETEXILATE MESYLATE
     Indication: PRODUCT USED FOR UNKNOWN INDICATION

REACTIONS (7)
  - Death [Fatal]
  - Subdural haematoma [Unknown]
  - Craniocerebral injury [Unknown]
  - Subgaleal haematoma [Unknown]
  - Eyelid haematoma [Unknown]
  - Subarachnoid haemorrhage [Unknown]
  - Fall [Unknown]
